FAERS Safety Report 10020935 (Version 4)
Quarter: 2014Q2

REPORT INFORMATION
  Report Type: Spontaneous
  Country: JP (occurrence: JP)
  Receive Date: 20140319
  Receipt Date: 20140515
  Transmission Date: 20141212
  Serious: Yes (Hospitalization)
  Sender: FDA-Public Use
  Company Number: JP-JNJFOC-20140309675

PATIENT
  Age: 72 Year
  Sex: Female

DRUGS (6)
  1. SIMPONI [Suspect]
     Indication: RHEUMATOID ARTHRITIS
     Route: 058
     Dates: start: 20110124, end: 20140226
  2. PREDONINE [Suspect]
     Indication: RHEUMATOID ARTHRITIS
     Route: 048
     Dates: start: 201006
  3. BREDININ [Concomitant]
     Indication: RHEUMATOID ARTHRITIS
     Route: 048
     Dates: start: 20100124
  4. WARFARIN [Concomitant]
     Indication: THROMBOSIS
     Route: 048
     Dates: start: 20140214, end: 20140310
  5. HEPARIN AND PREPARATIONS [Concomitant]
     Indication: THROMBOSIS
     Route: 048
     Dates: start: 20140311
  6. THYRADIN [Concomitant]
     Indication: HYPOTHYROIDISM
     Route: 048

REACTIONS (2)
  - Arthritis infective [Recovering/Resolving]
  - Knee arthroplasty [Unknown]
